FAERS Safety Report 26007741 (Version 2)
Quarter: 2025Q4

REPORT INFORMATION
  Report Type: Spontaneous
  Country: JP (occurrence: JP)
  Receive Date: 20251106
  Receipt Date: 20251121
  Transmission Date: 20260118
  Serious: Yes (Death, Hospitalization, Other)
  Sender: GILEAD
  Company Number: JP-GILEAD-2025-0707465

PATIENT
  Age: 50 Year
  Sex: Female

DRUGS (2)
  1. TRODELVY [Suspect]
     Active Substance: SACITUZUMAB GOVITECAN-HZIY
     Indication: Triple negative breast cancer
     Dosage: UNK
     Route: 065
     Dates: start: 20250227, end: 2025
  2. TRODELVY [Suspect]
     Active Substance: SACITUZUMAB GOVITECAN-HZIY
     Dosage: 2-LEVEL REDUCED DOSE
     Route: 065
     Dates: start: 202505, end: 202510

REACTIONS (6)
  - Febrile neutropenia [Recovering/Resolving]
  - Diarrhoea [Recovered/Resolved]
  - Triple negative breast cancer [Fatal]
  - Malaise [Unknown]
  - Stomatitis [Recovered/Resolved]
  - Eastern Cooperative Oncology Group performance status worsened [Unknown]

NARRATIVE: CASE EVENT DATE: 20250101
